FAERS Safety Report 9498535 (Version 1)
Quarter: 2013Q3

REPORT INFORMATION
  Report Type: Spontaneous
  Country: DE (occurrence: DE)
  Receive Date: 20130904
  Receipt Date: 20130904
  Transmission Date: 20140515
  Serious: Yes (Death, Life-Threatening)
  Sender: FDA-Public Use
  Company Number: DE-GLAXOSMITHKLINE-D0080981A

PATIENT
  Sex: Female

DRUGS (4)
  1. ARIXTRA [Suspect]
     Indication: PELVIC VENOUS THROMBOSIS
     Route: 058
     Dates: start: 20130803
  2. PREDNISOLON [Suspect]
     Indication: CHRONIC OBSTRUCTIVE PULMONARY DISEASE
     Dosage: 2.5MG PER DAY
     Route: 048
     Dates: start: 20130803
  3. SPIRO [Concomitant]
     Indication: CHRONIC OBSTRUCTIVE PULMONARY DISEASE
     Dosage: 25MG PER DAY
     Route: 048
     Dates: start: 20130803
  4. FOLIC ACID [Concomitant]
     Route: 048
     Dates: start: 20130803

REACTIONS (2)
  - Subdural haematoma [Fatal]
  - Craniocerebral injury [Fatal]
